FAERS Safety Report 9587841 (Version 1)
Quarter: 2013Q4

REPORT INFORMATION
  Report Type: Spontaneous
  Country: US (occurrence: US)
  Receive Date: 20131003
  Receipt Date: 20131003
  Transmission Date: 20140711
  Serious: Yes (Death, Other)
  Sender: FDA-Public Use
  Company Number: US-MERCK-1310USA001287

PATIENT
  Sex: Male

DRUGS (1)
  1. JANUVIA [Suspect]

REACTIONS (1)
  - Pancreatic carcinoma [Fatal]
